FAERS Safety Report 7690428-9 (Version None)
Quarter: 2011Q3

REPORT INFORMATION
  Report Type: 
  Country: None (occurrence: None)
  Receive Date: 20110812
  Receipt Date: 20110804
  Transmission Date: 20111222
  Serious: Yes (Other)
  Sender: FDA-Public Use
  Company Number: 2011AP000053

PATIENT
  Age: 61 Year
  Sex: Male

DRUGS (3)
  1. LANSOPRAZOLE [Suspect]
  2. OMEPRAZOLE [Suspect]
     Indication: GASTROOESOPHAGEAL REFLUX DISEASE
     Dosage: 60 MG; QD
  3. RANITIDINE [Concomitant]

REACTIONS (4)
  - HYPOCALCAEMIA [None]
  - PARAESTHESIA [None]
  - FATIGUE [None]
  - HYPOMAGNESAEMIA [None]
